FAERS Safety Report 6189354-6 (Version None)
Quarter: 2009Q2

REPORT INFORMATION
  Report Type: 
  Country: None (occurrence: None)
  Receive Date: 20090512
  Receipt Date: 20090423
  Transmission Date: 20091009
  Serious: Yes (Death, Life-Threatening, Hospitalization, Other)
  Sender: FDA-Public Use
  Company Number: ADE# 09-151DPR

PATIENT
  Age: 81 Year
  Sex: Male

DRUGS (2)
  1. DIGOXIN [Suspect]
     Indication: CARDIAC DISORDER
     Dates: start: 20070801
  2. UNSPECIFIED HEART MEDICATION [Concomitant]

REACTIONS (7)
  - DYSPNOEA [None]
  - GALLBLADDER DISORDER [None]
  - GASTROINTESTINAL DISORDER [None]
  - HYPOTENSION [None]
  - LARGE INTESTINE PERFORATION [None]
  - LUNG DISORDER [None]
  - RENAL FAILURE [None]
